FAERS Safety Report 4674038-3 (Version None)
Quarter: 2005Q2

REPORT INFORMATION
  Report Type: 
  Country: None (occurrence: None)
  Receive Date: 20050525
  Receipt Date: 20050510
  Transmission Date: 20051028
  Serious: Yes (Life-Threatening, Other)
  Sender: FDA-Public Use
  Company Number: JP_050506538

PATIENT
  Age: 77 Year
  Sex: Female

DRUGS (4)
  1. ONCOVIN [Suspect]
     Indication: MALIGNANT MELANOMA
     Dosage: 1 MG OTHER
     Dates: start: 20000101, end: 20040101
  2. DACARBAZINE [Concomitant]
  3. NIDRAN (NIMUSTINE HYDROCHLORIDE) [Concomitant]
  4. FERON (INTERFERON BETA) [Concomitant]

REACTIONS (1)
  - MYELODYSPLASTIC SYNDROME [None]
